FAERS Safety Report 8159342-9 (Version None)
Quarter: 2012Q1

REPORT INFORMATION
  Report Type: 
  Country: None (occurrence: None)
  Receive Date: 20120223
  Receipt Date: 20120221
  Transmission Date: 20120608
  Serious: Yes (Disabling, Other)
  Sender: FDA-Public Use
  Company Number: US-PFIZER INC-2012046145

PATIENT
  Sex: Female

DRUGS (2)
  1. EFFEXOR XR [Suspect]
     Indication: DEPRESSION
     Dosage: 150 MG, 1X/DAY
     Route: 048
  2. CLONAZEPAM [Concomitant]
     Indication: ANXIETY
     Dosage: UNK

REACTIONS (2)
  - MUSCULAR DYSTROPHY [None]
  - NEOPLASM MALIGNANT [None]
